FAERS Safety Report 7509544-7 (Version None)
Quarter: 2011Q2

REPORT INFORMATION
  Report Type: 
  Country: None (occurrence: None)
  Receive Date: 20110527
  Receipt Date: 20110518
  Transmission Date: 20111010
  Serious: Yes (Other)
  Sender: FDA-Public Use
  Company Number: AU-ASTRAZENECA-2011SE30147

PATIENT
  Sex: Male

DRUGS (5)
  1. AVAPRO [Concomitant]
  2. NEXIUM [Suspect]
     Route: 048
     Dates: start: 20110501
  3. BETALOC [Concomitant]
  4. NORVASC [Concomitant]
  5. PLAVIX [Concomitant]

REACTIONS (1)
  - HAEMATEMESIS [None]
